FAERS Safety Report 13375475 (Version 4)
Quarter: 2017Q3

REPORT INFORMATION
  Report Type: Report from Study
  Country: US (occurrence: CA)
  Receive Date: 20170327
  Receipt Date: 20170921
  Transmission Date: 20171127
  Serious: Yes (Hospitalization, Other)
  Sender: FDA-Public Use
  Company Number: US-SUNOVION-2017SUN001277

PATIENT
  Age: 59 Year
  Sex: Female

DRUGS (27)
  1. METFORMIN [Concomitant]
     Active Substance: METFORMIN HYDROCHLORIDE
  2. VITAMIN D [Concomitant]
     Active Substance: CHOLECALCIFEROL
  3. EUROFER [Concomitant]
  4. XOLAIR [Suspect]
     Active Substance: OMALIZUMAB
     Dosage: UNK
     Route: 058
     Dates: start: 20160622
  5. XOLAIR [Suspect]
     Active Substance: OMALIZUMAB
     Dosage: UNK
     Route: 058
     Dates: start: 20160511
  6. VENTOLIN [Concomitant]
     Active Substance: ALBUTEROL SULFATE
  7. AZITHROMYCIN ANHYDROUS. [Concomitant]
     Active Substance: AZITHROMYCIN ANHYDROUS
  8. AMLODIPINE [Concomitant]
     Active Substance: AMLODIPINE BESYLATE
  9. GLYCOPYRROLATE. [Suspect]
     Active Substance: GLYCOPYRROLATE
     Indication: ASTHMA
     Dosage: 50 ?G, QD
     Route: 055
     Dates: start: 20150324
  10. XOLAIR [Suspect]
     Active Substance: OMALIZUMAB
     Dosage: UNK
     Route: 058
     Dates: start: 20160525
  11. SYNTHROID [Concomitant]
     Active Substance: LEVOTHYROXINE SODIUM
  12. DIAMICRON [Concomitant]
     Active Substance: GLICLAZIDE
  13. EPIPEN [Concomitant]
     Active Substance: EPINEPHRINE
  14. BENADRYL [Concomitant]
     Active Substance: DIPHENHYDRAMINE HYDROCHLORIDE
  15. XOLAIR [Suspect]
     Active Substance: OMALIZUMAB
     Dosage: UNK
     Route: 058
     Dates: start: 20160706
  16. XOLAIR [Suspect]
     Active Substance: OMALIZUMAB
     Dosage: UNK
     Route: 058
     Dates: start: 20160720
  17. VITAMIN B12 [Concomitant]
     Active Substance: CYANOCOBALAMIN
  18. ALVESCO [Concomitant]
     Active Substance: CICLESONIDE
  19. XOLAIR [Suspect]
     Active Substance: OMALIZUMAB
     Indication: ASTHMA
     Dosage: 375 MG,BIWEEKLY
     Route: 058
     Dates: start: 20151216
  20. XOLAIR [Suspect]
     Active Substance: OMALIZUMAB
     Dosage: UNK
     Route: 058
     Dates: start: 20161109
  21. XOLAIR [Suspect]
     Active Substance: OMALIZUMAB
     Dosage: UNK
     Route: 058
     Dates: start: 20170301
  22. TECTA [Concomitant]
     Active Substance: PANTOPRAZOLE MAGNESIUM
  23. ASA [Concomitant]
     Active Substance: ASPIRIN
  24. XOLAIR [Suspect]
     Active Substance: OMALIZUMAB
     Dosage: UNK
     Route: 058
     Dates: start: 20170412
  25. ZENHALE [Concomitant]
     Active Substance: FORMOTEROL FUMARATE\MOMETASONE FUROATE
  26. PAROXETINE. [Concomitant]
     Active Substance: PAROXETINE
  27. MELOXICAM. [Concomitant]
     Active Substance: MELOXICAM

REACTIONS (12)
  - Dyspnoea exertional [Unknown]
  - Asthma [Unknown]
  - Malaise [Unknown]
  - Dyspnoea [Unknown]
  - Humidity intolerance [Unknown]
  - Blood pressure abnormal [Unknown]
  - Neoplasm malignant [Unknown]
  - Plasma cell myeloma [Unknown]
  - Inflammation [Not Recovered/Not Resolved]
  - Blood disorder [Not Recovered/Not Resolved]
  - Product use in unapproved indication [Unknown]
  - Chronic obstructive pulmonary disease [Unknown]

NARRATIVE: CASE EVENT DATE: 20160525
